FAERS Safety Report 8766826 (Version 1)
Quarter: 2012Q4

REPORT INFORMATION
  Report Type: 
  Country: US (occurrence: US)
  Receive Date: 20120904
  Receipt Date: 20120904
  Transmission Date: 20130627
  Serious: Yes (Life-Threatening, Other)
  Sender: FDA-Public Use
  Company Number: US-JNJFOC-20120301726

PATIENT
  Sex: Female

DRUGS (1)
  1. TRINESSA [Suspect]
     Indication: PRODUCT USED FOR UNKNOWN INDICATION
     Route: 048
     Dates: start: 20100228

REACTIONS (2)
  - Cerebrovascular accident [Unknown]
  - Injury [Unknown]
